FAERS Safety Report 13044843 (Version 1)
Quarter: 2016Q4

REPORT INFORMATION
  Report Type: Spontaneous
  Country: US (occurrence: US)
  Receive Date: 20161220
  Receipt Date: 20161220
  Transmission Date: 20170207
  Serious: Yes (Life-Threatening, Hospitalization, Other)
  Sender: FDA-Public Use
  Company Number: US-ZYDUS-012945

PATIENT
  Age: 53 Year
  Sex: Male

DRUGS (1)
  1. NITROGLYCERIN. [Suspect]
     Active Substance: NITROGLYCERIN
     Indication: CHEST DISCOMFORT
     Route: 065

REACTIONS (2)
  - Loss of consciousness [Recovered/Resolved]
  - Cardiac arrest [Recovered/Resolved]
